FAERS Safety Report 22633826 (Version 1)
Quarter: 2023Q2

REPORT INFORMATION
  Report Type: Spontaneous
  Country: ES (occurrence: ES)
  Receive Date: 20230623
  Receipt Date: 20230623
  Transmission Date: 20230722
  Serious: Yes (Life-Threatening, Hospitalization)
  Sender: FDA-Public Use
  Company Number: ES-Accord-362624

PATIENT
  Age: 69 Year
  Sex: Male
  Weight: 83.5 kg

DRUGS (37)
  1. GEMCITABINE [Suspect]
     Active Substance: GEMCITABINE
     Indication: Ductal adenocarcinoma of pancreas
     Dosage: DOSE GIVEN ON DAY 1, 8 AND 15?1900 MG, ONCE
     Route: 042
     Dates: start: 20221121, end: 20221121
  2. PACLITAXEL [Suspect]
     Active Substance: PACLITAXEL
     Indication: Ductal adenocarcinoma of pancreas
     Dosage: DOSE GIVEN ON DAY 1, 8 AND 15
     Route: 042
     Dates: start: 20221121, end: 20221121
  3. ASPIRIN [Concomitant]
     Active Substance: ASPIRIN
     Indication: Hypertension
     Dosage: 100 MG,1 D
     Route: 048
     Dates: start: 20220112
  4. BUDESONIDE [Concomitant]
     Active Substance: BUDESONIDE
     Indication: Pneumonia
     Route: 045
  5. CALCIFEDIOL [Concomitant]
     Active Substance: CALCIFEDIOL
     Indication: Prophylaxis
     Route: 048
  6. CINITAPRIDE [Concomitant]
     Active Substance: CINITAPRIDE
     Indication: Prophylaxis against gastrointestinal ulcer
     Dosage: 1 MG, 3 D
     Route: 048
     Dates: start: 20221103
  7. ENALAPRIL [Concomitant]
     Active Substance: ENALAPRIL
     Indication: Hypertension
     Dosage: 10 MG,1 D
     Route: 048
     Dates: start: 20220112
  8. FUROSEMIDE [Concomitant]
     Active Substance: FUROSEMIDE
     Indication: Hypertension
     Dosage: 40 MG, 2 D
     Route: 048
     Dates: start: 20221110
  9. IBUPROFEN [Concomitant]
     Active Substance: IBUPROFEN
     Indication: Pain prophylaxis
     Dosage: 600 MG, 2 D
     Route: 048
     Dates: start: 20221111
  10. NOVORAPID [Concomitant]
     Active Substance: INSULIN ASPART
     Indication: Type 2 diabetes mellitus
     Dosage: 53 IU,1 D
     Route: 030
     Dates: start: 20220817
  11. IPRATROPIUM BROMIDE [Concomitant]
     Active Substance: IPRATROPIUM BROMIDE\IPRATROPIUM BROMIDE ANHYDROUS
     Indication: Pneumonia
     Dosage: 2 OTHER PUFF (3 D)
     Route: 045
     Dates: start: 20221212
  12. MAGNESIO [Concomitant]
     Indication: Hypomagnesaemia
     Dosage: 2.4 GM,2 D
     Route: 048
     Dates: start: 20230320
  13. METAMIZOL [Concomitant]
     Active Substance: METAMIZOLE SODIUM
     Indication: Pain prophylaxis
     Dosage: 575 MG, 3 D
     Route: 048
     Dates: start: 20221111
  14. OXYGEN [Concomitant]
     Active Substance: OXYGEN
     Indication: Pneumonia
     Route: 045
     Dates: start: 20221204
  15. PANTOPRAZOLE SODIUM [Concomitant]
     Active Substance: PANTOPRAZOLE SODIUM
     Indication: Prophylaxis against gastrointestinal ulcer
     Dosage: 40 MG,1 D
     Route: 048
     Dates: start: 20220112
  16. INSULIN GLARGINE [Concomitant]
     Active Substance: INSULIN GLARGINE
     Indication: Diabetes mellitus
     Dosage: 29 IU,1 D
     Route: 058
     Dates: start: 20220817
  17. ZOLPIDEM [Concomitant]
     Active Substance: ZOLPIDEM TARTRATE
     Indication: Insomnia
     Dosage: 10 MG, AS REQUIRED
     Route: 048
     Dates: start: 20221212
  18. GEMCITABINE [Suspect]
     Active Substance: GEMCITABINE
     Indication: Ductal adenocarcinoma of pancreas
     Dosage: DOSE GIVEN ON DAY 1, 8 AND 15?1900 MG, ONCE
     Route: 042
     Dates: start: 20221128, end: 20221128
  19. GEMCITABINE [Suspect]
     Active Substance: GEMCITABINE
     Indication: Ductal adenocarcinoma of pancreas
     Dosage: DOSE GIVEN ON DAY 1, 8 AND 15?1900 MG, ONCE
     Route: 042
     Dates: start: 20221219, end: 20221219
  20. GEMCITABINE [Suspect]
     Active Substance: GEMCITABINE
     Indication: Ductal adenocarcinoma of pancreas
     Dosage: DOSE GIVEN ON DAY 1, 8 AND 15?1900 MG, ONCE
     Route: 042
     Dates: start: 20221227, end: 20221227
  21. GEMCITABINE [Suspect]
     Active Substance: GEMCITABINE
     Indication: Ductal adenocarcinoma of pancreas
     Dosage: DOSE GIVEN ON DAY 1, 8 AND 15?1900 MG, ONCE
     Route: 042
     Dates: start: 20230116, end: 20230116
  22. GEMCITABINE [Suspect]
     Active Substance: GEMCITABINE
     Indication: Ductal adenocarcinoma of pancreas
     Dosage: DOSE GIVEN ON DAY 1, 8 AND 15?1900 MG, ONCE
     Route: 042
     Dates: start: 20230123, end: 20230123
  23. GEMCITABINE [Suspect]
     Active Substance: GEMCITABINE
     Indication: Ductal adenocarcinoma of pancreas
     Dosage: DOSE GIVEN ON DAY 1, 8 AND 15?1900 MG, ONCE
     Route: 042
     Dates: start: 20230130, end: 20230130
  24. GEMCITABINE [Suspect]
     Active Substance: GEMCITABINE
     Indication: Ductal adenocarcinoma of pancreas
     Dosage: DOSE GIVEN ON DAY 1, 8 AND 15?1830 MG, ONCE
     Route: 042
     Dates: start: 20230220, end: 20230220
  25. GEMCITABINE [Suspect]
     Active Substance: GEMCITABINE
     Indication: Ductal adenocarcinoma of pancreas
     Dosage: DOSE GIVEN ON DAY 1, 8 AND 15?1830 MG, ONCE
     Route: 042
     Dates: start: 20230227, end: 20230227
  26. GEMCITABINE [Suspect]
     Active Substance: GEMCITABINE
     Indication: Ductal adenocarcinoma of pancreas
     Dosage: DOSE GIVEN ON DAY 1, 8 AND 15?1830 MG, ONCE
     Route: 042
     Dates: start: 20230306, end: 20230306
  27. GEMCITABINE [Suspect]
     Active Substance: GEMCITABINE
     Indication: Ductal adenocarcinoma of pancreas
     Dosage: DOSE GIVEN ON DAY 1, 8 AND 15?1830 MG, ONCE
     Route: 042
     Dates: start: 20230320, end: 20230320
  28. GEMCITABINE [Suspect]
     Active Substance: GEMCITABINE
     Indication: Ductal adenocarcinoma of pancreas
     Dosage: DOSE GIVEN ON DAY 1, 8 AND 15?1830 MG, ONCE
     Route: 042
     Dates: start: 20230503, end: 20230503
  29. GEMCITABINE [Suspect]
     Active Substance: GEMCITABINE
     Indication: Ductal adenocarcinoma of pancreas
     Dosage: DOSE GIVEN ON DAY 1, 8 AND 15?1464 MG, ONCE
     Route: 042
     Dates: start: 20230524, end: 20230524
  30. GEMCITABINE [Suspect]
     Active Substance: GEMCITABINE
     Indication: Ductal adenocarcinoma of pancreas
     Dosage: DOSE GIVEN ON DAY 1, 8 AND 15?1464 MG, ONCE
     Route: 042
     Dates: start: 20230531, end: 20230531
  31. PACLITAXEL [Suspect]
     Active Substance: PACLITAXEL
     Indication: Ductal adenocarcinoma of pancreas
     Dosage: DOSE GIVEN ON DAY 1, 8 AND 15?237 MG, ONCE
     Route: 042
     Dates: start: 20221128, end: 20221128
  32. PACLITAXEL [Suspect]
     Active Substance: PACLITAXEL
     Indication: Ductal adenocarcinoma of pancreas
     Dosage: DOSE GIVEN ON DAY 1, 8 AND 15?237 MG, ONCE
     Route: 042
     Dates: start: 20221219, end: 20221219
  33. PACLITAXEL [Suspect]
     Active Substance: PACLITAXEL
     Indication: Ductal adenocarcinoma of pancreas
     Dosage: DOSE GIVEN ON DAY 1, 8 AND 15?237 MG, ONCE
     Route: 042
     Dates: start: 20221227, end: 20221227
  34. PACLITAXEL [Suspect]
     Active Substance: PACLITAXEL
     Indication: Ductal adenocarcinoma of pancreas
     Dosage: DOSE GIVEN ON DAY 1, 8 AND 15?237 MG, ONCE
     Route: 042
     Dates: start: 20230116, end: 20230116
  35. PACLITAXEL [Suspect]
     Active Substance: PACLITAXEL
     Indication: Ductal adenocarcinoma of pancreas
     Dosage: DOSE GIVEN ON DAY 1, 8 AND 15?237 MG, ONCE
     Route: 042
     Dates: start: 20230123, end: 20230123
  36. PACLITAXEL [Suspect]
     Active Substance: PACLITAXEL
     Indication: Ductal adenocarcinoma of pancreas
     Dosage: DOSE GIVEN ON DAY 1, 8 AND 15?237 MG, ONCE
     Route: 042
     Dates: start: 20230130, end: 20230130
  37. PACLITAXEL [Suspect]
     Active Substance: PACLITAXEL
     Indication: Ductal adenocarcinoma of pancreas
     Dosage: DOSE GIVEN ON DAY 1, 8 AND 15?228.75, ONCE
     Route: 042
     Dates: start: 20230220, end: 20230220

REACTIONS (2)
  - Febrile neutropenia [Not Recovered/Not Resolved]
  - Neutropenic colitis [Not Recovered/Not Resolved]

NARRATIVE: CASE EVENT DATE: 20230604
